FAERS Safety Report 4896852-1 (Version None)
Quarter: 2006Q1

REPORT INFORMATION
  Report Type: 
  Country: None (occurrence: None)
  Receive Date: 20060126
  Receipt Date: 20060112
  Transmission Date: 20060701
  Serious: Yes (Hospitalization)
  Sender: FDA-Public Use
  Company Number: 02100-JPN-06-0002

PATIENT
  Age: 74 Year
  Sex: Male

DRUGS (11)
  1. CILOSTAZOL [Suspect]
     Indication: CEREBRAL INFARCTION
     Dosage: 200 MG ORAL
     Route: 048
     Dates: start: 20051024, end: 20051114
  2. LANSOPRAZOLE [Concomitant]
  3. FERROUS SULFATE TAB [Concomitant]
  4. TAMSULOSIN HCL [Concomitant]
  5. CHLORMADINONE ACETATE TAB [Concomitant]
  6. FURSULTIAMINE [Concomitant]
  7. TRAZODONE [Concomitant]
  8. VOGLIBOSE [Concomitant]
  9. AMANTADINE HCL [Concomitant]
  10. TERAZOSIN HYDROCHLORIDE [Concomitant]
  11. ENALAPRIL MALEATE [Concomitant]

REACTIONS (7)
  - DEPRESSED LEVEL OF CONSCIOUSNESS [None]
  - DRUG LEVEL INCREASED [None]
  - EROSIVE OESOPHAGITIS [None]
  - HAEMOGLOBIN DECREASED [None]
  - REFLUX OESOPHAGITIS [None]
  - SHOCK HAEMORRHAGIC [None]
  - UPPER GASTROINTESTINAL HAEMORRHAGE [None]
